FAERS Safety Report 8584626-X (Version None)
Quarter: 2012Q3

REPORT INFORMATION
  Report Type: 
  Country: None (occurrence: None)
  Receive Date: 20120802
  Receipt Date: 20120802
  Transmission Date: 20120928
  Serious: No
  Sender: FDA-Public Use
  Company Number: None

PATIENT
  Age: 65 Year
  Sex: Female
  Weight: 68.0396 kg

DRUGS (1)
  1. RETIN-A MICRO [Suspect]
     Indication: SKIN WRINKLING
     Dosage: PEA SIZE DOSE BIW TO TIW TOP
     Route: 061

REACTIONS (3)
  - PRODUCT QUALITY ISSUE [None]
  - SKIN EXFOLIATION [None]
  - DRUG INEFFECTIVE [None]
